FAERS Safety Report 6768451-8 (Version None)
Quarter: 2010Q2

REPORT INFORMATION
  Report Type: 
  Country: None (occurrence: None)
  Receive Date: 20100614
  Receipt Date: 20100607
  Transmission Date: 20101027
  Serious: Yes (Hospitalization)
  Sender: FDA-Public Use
  Company Number: DE-BAYER-201028002GPV

PATIENT
  Age: 32 Year
  Sex: Female
  Weight: 54 kg

DRUGS (9)
  1. CIPRO [Suspect]
     Indication: URINARY TRACT INFECTION
     Dosage: UNIT DOSE: 500 MG
     Route: 048
     Dates: start: 20090807, end: 20090808
  2. ZIENAM [Suspect]
     Indication: ESCHERICHIA URINARY TRACT INFECTION
     Dosage: UNIT DOSE: 500 MG
     Route: 042
     Dates: start: 20090808, end: 20090821
  3. CELLCEPT [Suspect]
     Indication: RENAL TRANSPLANT
     Dosage: UNIT DOSE: 750 MG
     Route: 048
     Dates: start: 20080115
  4. SANDIMMUNE [Suspect]
     Indication: RENAL TRANSPLANT
     Dosage: UNIT DOSE: 200 MG
     Route: 048
     Dates: start: 20080115
  5. DECORTIN [Concomitant]
     Indication: RENAL TRANSPLANT
     Dosage: UNIT DOSE: 5 MG
     Route: 048
     Dates: start: 20080115
  6. PANTOZOL [Concomitant]
     Indication: PROPHYLAXIS AGAINST GASTROINTESTINAL ULCER
     Dosage: UNIT DOSE: 40 MG
     Route: 048
     Dates: start: 20080101
  7. CALCIMAGON-D3 [Concomitant]
     Indication: OSTEOPOROSIS PROPHYLAXIS
     Dosage: UNIT DOSE: 1 DF
     Route: 048
     Dates: start: 20080101
  8. LEVOTHYROXINE SODIUM [Concomitant]
     Indication: HYPOTHYROIDISM
     Dosage: UNIT DOSE: 25 ?G
     Route: 048
     Dates: start: 20030101
  9. TOREM [Concomitant]
     Indication: HYPERTENSION
     Dosage: UNIT DOSE: 2.5 MG
     Route: 048
     Dates: start: 20080101

REACTIONS (3)
  - GASTROENTERITIS CLOSTRIDIAL [None]
  - RENAL FAILURE ACUTE [None]
  - URINARY TRACT INFECTION [None]
